FAERS Safety Report 7007278-9 (Version None)
Quarter: 2010Q3

REPORT INFORMATION
  Report Type: 
  Country: None (occurrence: None)
  Receive Date: 20100922
  Receipt Date: 20100913
  Transmission Date: 20110219
  Serious: Yes (Hospitalization, Other)
  Sender: FDA-Public Use
  Company Number: PHHY2010BR60963

PATIENT
  Sex: Female

DRUGS (8)
  1. DIOVAN HCT [Suspect]
     Dosage: 320/25 MG
     Dates: start: 20090101
  2. AMLODIPINE BESYLATE AND VALSARTAN [Suspect]
     Dosage: 1 TABLET A DAY
     Dates: start: 20100801
  3. HYGROTON [Suspect]
     Indication: BLOOD PRESSURE INCREASED
     Dosage: 25 MG, QD
     Route: 048
     Dates: start: 20100801
  4. ASPIRIN [Concomitant]
     Dosage: 3 TABS A DAY
     Route: 048
     Dates: start: 20100801
  5. SIMVASTATIN [Concomitant]
     Dosage: 1 TAB A DAY
     Route: 048
     Dates: start: 20100801
  6. FLUOXETINE [Concomitant]
     Dosage: 1 TAB A DAY
     Route: 048
     Dates: start: 20100801
  7. ALPRAZOLAM [Concomitant]
     Dosage: 3 TABS A DAY
     Route: 048
     Dates: start: 20100801
  8. AMLODIPINE BESYLATE [Concomitant]
     Dosage: UNK
     Dates: start: 20100801

REACTIONS (4)
  - BLOOD PRESSURE INCREASED [None]
  - CEREBROVASCULAR ACCIDENT [None]
  - DISABILITY [None]
  - NERVOUSNESS [None]
